FAERS Safety Report 10912988 (Version 4)
Quarter: 2015Q2

REPORT INFORMATION
  Report Type: Spontaneous
  Country: SE (occurrence: SE)
  Receive Date: 20150313
  Receipt Date: 20150522
  Transmission Date: 20150821
  Serious: Yes (Hospitalization, Other)
  Sender: FDA-Public Use
  Company Number: SE-PFIZER INC-2015086220

PATIENT
  Age: 75 Year
  Sex: Male

DRUGS (2)
  1. DETRUSITOL SR [Suspect]
     Active Substance: TOLTERODINE TARTRATE
     Dosage: UNK, AS NEEDED
     Dates: start: 2011, end: 201409
  2. DETRUSITOL SR [Suspect]
     Active Substance: TOLTERODINE TARTRATE
     Indication: PROSTATIC DISORDER
     Dosage: 4 MG, 1X/DAY
     Dates: end: 2011

REACTIONS (5)
  - Prostatic disorder [Unknown]
  - Drug effect incomplete [Not Recovered/Not Resolved]
  - Product use issue [Unknown]
  - Hernia [Unknown]
  - Expired product administered [Unknown]

NARRATIVE: CASE EVENT DATE: 2010
